FAERS Safety Report 14859425 (Version 1)
Quarter: 2018Q2

REPORT INFORMATION
  Report Type: Spontaneous
  Country: FR (occurrence: FR)
  Receive Date: 20180508
  Receipt Date: 20180508
  Transmission Date: 20180711
  Serious: Yes (Other)
  Sender: FDA-Public Use
  Company Number: FR-MERCK KGAA-2047387

PATIENT
  Age: 44 Year
  Sex: Female

DRUGS (1)
  1. NOVOTHYROX [Suspect]
     Active Substance: LEVOTHYROXINE SODIUM
     Indication: POST PROCEDURAL HYPOTHYROIDISM

REACTIONS (18)
  - Loss of personal independence in daily activities [None]
  - Insomnia [None]
  - Arthralgia [None]
  - Vitamin D abnormal [None]
  - Mood swings [None]
  - Aggression [None]
  - Affective disorder [None]
  - Blood thyroid stimulating hormone decreased [None]
  - Social avoidant behaviour [None]
  - Personal relationship issue [None]
  - Irritability [None]
  - Headache [Recovered/Resolved]
  - Nausea [None]
  - Depression [None]
  - Asthenia [Recovered/Resolved]
  - Cortisol increased [None]
  - Fatigue [None]
  - Disturbance in attention [None]

NARRATIVE: CASE EVENT DATE: 20170224
